FAERS Safety Report 24353121 (Version 7)
Quarter: 2024Q4

REPORT INFORMATION
  Report Type: Spontaneous
  Country: CA (occurrence: CA)
  Receive Date: 20240923
  Receipt Date: 20241223
  Transmission Date: 20250114
  Serious: Yes (Hospitalization, Other)
  Sender: PFIZER
  Company Number: CA-PFIZER INC-202300296274

PATIENT
  Age: 71 Year
  Sex: Female

DRUGS (3)
  1. RUXIENCE [Suspect]
     Active Substance: RITUXIMAB-PVVR
     Indication: Granulomatosis with polyangiitis
     Dosage: 1000 MG, DAY 1 AND DAY 15
     Route: 042
     Dates: start: 20231019, end: 20231101
  2. RUXIENCE [Suspect]
     Active Substance: RITUXIMAB-PVVR
     Dosage: 500 MG, EVERY 6 MONTHS
     Route: 042
     Dates: start: 20240410, end: 2024
  3. RUXIENCE [Suspect]
     Active Substance: RITUXIMAB-PVVR
     Dosage: 500 MG, ONE TREATMENT, AFTER 35 WEEKS AND 1 DAY
     Route: 042
     Dates: start: 20241216

REACTIONS (9)
  - COVID-19 [Recovered/Resolved]
  - Lower limb fracture [Unknown]
  - Thrombosis [Not Recovered/Not Resolved]
  - Subclavian vein stenosis [Unknown]
  - Jugular vein thrombosis [Recovered/Resolved]
  - Vein collapse [Recovered/Resolved]
  - Off label use [Unknown]
  - Off label use [Unknown]
  - Intentional product use issue [Unknown]

NARRATIVE: CASE EVENT DATE: 20240101
